FAERS Safety Report 4349033-4 (Version None)
Quarter: 2004Q2

REPORT INFORMATION
  Report Type: 
  Country: None (occurrence: None)
  Receive Date: 20040427
  Receipt Date: 20040427
  Transmission Date: 20050107
  Serious: Yes (Other)
  Sender: FDA-Public Use
  Company Number: None

PATIENT

DRUGS (2)
  1. TOPROL-XL [Suspect]
     Indication: PALPITATIONS
     Dosage: 50 MG QD
     Dates: start: 20040301, end: 20040401
  2. ATENOLOL [Suspect]

REACTIONS (1)
  - NAUSEA [None]
